FAERS Safety Report 9718055 (Version 2)
Quarter: 2014Q1

REPORT INFORMATION
  Report Type: Report from Study
  Country: US (occurrence: US)
  Receive Date: 20131127
  Receipt Date: 20140228
  Transmission Date: 20141002
  Serious: Yes (Hospitalization, Other)
  Sender: FDA-Public Use
  Company Number: 2013SP003470

PATIENT
  Age: 40 Year
  Sex: Male
  Weight: 87 kg

DRUGS (10)
  1. ESLICARBAZEPINE ACETATE [Suspect]
     Indication: COMPLEX PARTIAL SEIZURES
     Route: 048
     Dates: start: 20130620, end: 20131125
  2. ESLICARBAZEPINE ACETATE [Suspect]
     Indication: COMPLEX PARTIAL SEIZURES
     Route: 048
     Dates: start: 20130528, end: 20130620
  3. ESLICARBAZEPINE ACETATE [Suspect]
     Indication: COMPLEX PARTIAL SEIZURES
     Route: 048
     Dates: start: 20130521, end: 20130528
  4. ENALAPRIL [Concomitant]
     Indication: HYPERTENSION
     Route: 048
     Dates: start: 201208, end: 20130918
  5. LEVOCETIRIZINE [Concomitant]
     Indication: HYPERSENSITIVITY
     Route: 048
     Dates: start: 20130329, end: 201308
  6. MONTELUKAST [Concomitant]
     Indication: HYPERSENSITIVITY
     Route: 048
     Dates: start: 20130329
  7. DRUGS USED IN NICOTINE DEPENDENCE [Concomitant]
     Indication: SMOKING CESSATION THERAPY
     Route: 062
     Dates: start: 20130515, end: 201308
  8. PATANASE [Concomitant]
     Indication: HYPERSENSITIVITY
     Route: 045
     Dates: start: 20130605, end: 201308
  9. NEXIUM /01479303/ [Concomitant]
     Indication: GASTROOESOPHAGEAL REFLUX DISEASE
     Route: 048
     Dates: start: 20130605, end: 201308
  10. LYRICA [Concomitant]
     Indication: EPILEPSY
     Route: 048
     Dates: start: 20130618

REACTIONS (2)
  - Anxiety [Not Recovered/Not Resolved]
  - Depression [Not Recovered/Not Resolved]
